FAERS Safety Report 11211426 (Version 1)
Quarter: 2015Q2

REPORT INFORMATION
  Report Type: Spontaneous
  Country: CN (occurrence: None)
  Receive Date: 20150619
  Receipt Date: 20150619
  Transmission Date: 20150821
  Serious: Yes (Other)
  Sender: FDA-Public Use
  Company Number: CN-2015VAL000389

PATIENT
  Age: 64 Year
  Sex: Female

DRUGS (4)
  1. SALCATONIN [Suspect]
     Active Substance: CALCITONIN SALMON
     Indication: FRACTURE
     Route: 030
     Dates: start: 20140614, end: 20140615
  2. SALCATONIN [Suspect]
     Active Substance: CALCITONIN SALMON
     Indication: OSTEOPOROSIS
     Route: 030
     Dates: start: 20140614, end: 20140615
  3. ROCALTROL [Suspect]
     Active Substance: CALCITRIOL
     Indication: FRACTURE
     Route: 048
     Dates: start: 20140614, end: 20140615
  4. ROCALTROL [Suspect]
     Active Substance: CALCITRIOL
     Indication: OSTEOPOROSIS
     Route: 048
     Dates: start: 20140614, end: 20140615

REACTIONS (5)
  - Nausea [None]
  - Heart rate increased [None]
  - Vomiting [None]
  - Off label use [None]
  - Discomfort [None]

NARRATIVE: CASE EVENT DATE: 20140614
